FAERS Safety Report 18646094 (Version 1)
Quarter: 2020Q4

REPORT INFORMATION
  Report Type: Spontaneous
  Country: US (occurrence: US)
  Receive Date: 20201221
  Receipt Date: 20201221
  Transmission Date: 20210114
  Serious: Yes (Hospitalization, Other)
  Sender: FDA-Public Use
  Company Number: US-ABBVIE-20K-163-3689658-00

PATIENT
  Age: 80 Year
  Sex: Male
  Weight: 79 kg

DRUGS (3)
  1. SIMVASTATIN. [Concomitant]
     Active Substance: SIMVASTATIN
     Indication: BLOOD CHOLESTEROL INCREASED
  2. SYNTHROID [Suspect]
     Active Substance: LEVOTHYROXINE SODIUM
     Indication: HYPOTHYROIDISM
     Route: 048
  3. ANDROGEL [Suspect]
     Active Substance: TESTOSTERONE
     Indication: PRIMARY HYPOGONADISM
     Dosage: ANDROGEL PUMP
     Route: 061
     Dates: start: 2009, end: 20200905

REACTIONS (4)
  - Depressed level of consciousness [Recovered/Resolved]
  - Cerebrovascular accident [Recovering/Resolving]
  - Aphasia [Not Recovered/Not Resolved]
  - Carotid artery occlusion [Recovering/Resolving]

NARRATIVE: CASE EVENT DATE: 20200907
